FAERS Safety Report 19602578 (Version 3)
Quarter: 2021Q3

REPORT INFORMATION
  Report Type: Report from Study
  Country: US (occurrence: US)
  Receive Date: 20210723
  Receipt Date: 20210927
  Transmission Date: 20211014
  Serious: No
  Sender: FDA-Public Use
  Company Number: NVSC2021US166547

PATIENT
  Sex: Female

DRUGS (1)
  1. COSENTYX [Suspect]
     Active Substance: SECUKINUMAB
     Indication: PSORIATIC ARTHROPATHY
     Dosage: 150 MG, QMO
     Route: 058

REACTIONS (7)
  - Hyperhidrosis [Unknown]
  - Drug ineffective [Unknown]
  - Fatigue [Unknown]
  - Asthenia [Unknown]
  - Injection site pain [Unknown]
  - Pain [Unknown]
  - Nasopharyngitis [Unknown]
